FAERS Safety Report 5031998-9 (Version None)
Quarter: 2006Q2

REPORT INFORMATION
  Report Type: 
  Country: None (occurrence: None)
  Receive Date: 20060602
  Receipt Date: 20060522
  Transmission Date: 20061013
  Serious: Yes (Hospitalization)
  Sender: FDA-Public Use
  Company Number: THYM-10933

PATIENT
  Age: 55 Year
  Sex: Female
  Weight: 52 kg

DRUGS (7)
  1. THYMOGLOBULIN [Suspect]
     Indication: RENAL TRANSPLANT
     Dosage: 100 MG ONCE IV
     Route: 042
     Dates: start: 20051117, end: 20051117
  2. CELLCEPT [Concomitant]
  3. NORVASC [Concomitant]
  4. PROZAC [Concomitant]
  5. VALCYTE [Concomitant]
  6. BENADRYL [Concomitant]
  7. TYLENOL (CAPLET) [Concomitant]

REACTIONS (10)
  - BLOOD CREATININE INCREASED [None]
  - BLOOD UREA INCREASED [None]
  - CYTOKINE RELEASE SYNDROME [None]
  - DRUG LEVEL INCREASED [None]
  - OEDEMA PERIPHERAL [None]
  - OXYGEN SATURATION DECREASED [None]
  - POST PROCEDURAL COMPLICATION [None]
  - PULMONARY OEDEMA [None]
  - PYREXIA [None]
  - RESPIRATORY DISTRESS [None]
